FAERS Safety Report 20872187 (Version 1)
Quarter: 2022Q2

REPORT INFORMATION
  Report Type: Spontaneous
  Country: US (occurrence: US)
  Receive Date: 20220525
  Receipt Date: 20220525
  Transmission Date: 20220721
  Serious: No
  Sender: FDA-Public Use
  Company Number: US-009507513-2205USA006191

PATIENT
  Age: 59 Year
  Sex: Female

DRUGS (4)
  1. MOLNUPIRAVIR [Suspect]
     Active Substance: MOLNUPIRAVIR
     Indication: COVID-19 treatment
     Dosage: FOUR PILLS, EVERY TWELVE HOURS
     Route: 048
     Dates: start: 20220517
  2. CALCIUM PLUS RX [Concomitant]
     Dosage: 250 MG TABLET, EVERY FOUR HOURS
  3. D VIT [Concomitant]
     Dosage: UNKNOWN DOSE, ONCE PER DAY
  4. A-VIT [Concomitant]
     Dosage: UNKNOWN DOSE, ONCE PER DAY

REACTIONS (4)
  - Chest discomfort [Not Recovered/Not Resolved]
  - Hypogeusia [Not Recovered/Not Resolved]
  - Faeces soft [Not Recovered/Not Resolved]
  - Product use issue [Unknown]

NARRATIVE: CASE EVENT DATE: 20220518
